FAERS Safety Report 4943414-3 (Version None)
Quarter: 2006Q1

REPORT INFORMATION
  Report Type: 
  Country: None (occurrence: None)
  Receive Date: 20060313
  Receipt Date: 20060313
  Transmission Date: 20060701
  Serious: No
  Sender: FDA-Public Use
  Company Number: None

PATIENT
  Age: 69 Year
  Sex: Male
  Weight: 114.76 kg

DRUGS (4)
  1. FLUDARABINE [Suspect]
     Indication: ACUTE MYELOID LEUKAEMIA
     Dosage: 28 MG X5 DAYS IV OVER 30 MIN
     Route: 042
     Dates: start: 20050211, end: 20050215
  2. CARBOPLATIN [Suspect]
     Indication: ACUTE MYELOID LEUKAEMIA
     Dosage: 235 MG X 5 DOSES IV OVER 24 HRS
     Route: 042
     Dates: start: 20050211, end: 20060215
  3. TOPOTECAN [Suspect]
     Indication: ACUTE MYELOID LEUKAEMIA
     Dosage: 1.6MG X3 DOSES IV OVER 24 HR
     Route: 042
     Dates: start: 20050218, end: 20050301
  4. THALIDOMIDE [Suspect]
     Indication: ACUTE MYELOID LEUKAEMIA
     Dosage: 100 MG 200 MG QD X 7 DAYS QD PO
     Route: 048
     Dates: start: 20050218, end: 20050301

REACTIONS (6)
  - CATHETER SITE RELATED REACTION [None]
  - LOCAL SWELLING [None]
  - NECK MASS [None]
  - NECK PAIN [None]
  - THROMBOPHLEBITIS [None]
  - TREATMENT NONCOMPLIANCE [None]
